FAERS Safety Report 7910176-7 (Version None)
Quarter: 2011Q4

REPORT INFORMATION
  Report Type: 
  Country: None (occurrence: None)
  Receive Date: 20111111
  Receipt Date: 20111102
  Transmission Date: 20120403
  Serious: Yes (Hospitalization)
  Sender: FDA-Public Use
  Company Number: JP-ROCHE-1010499

PATIENT
  Sex: Female

DRUGS (5)
  1. ACTEMRA [Suspect]
     Route: 041
     Dates: start: 20090120, end: 20090120
  2. ACTEMRA [Suspect]
     Route: 041
     Dates: start: 20081118, end: 20081118
  3. ACTEMRA [Suspect]
     Dosage: 280-290MG
     Route: 041
     Dates: start: 20090619
  4. PREDNISOLONE [Concomitant]
     Indication: RHEUMATOID ARTHRITIS
     Route: 048
     Dates: start: 20080222
  5. ACTEMRA [Suspect]
     Indication: RHEUMATOID ARTHRITIS
     Route: 041
     Dates: start: 20080908, end: 20081008

REACTIONS (2)
  - THALAMUS HAEMORRHAGE [None]
  - PAROTITIS [None]
